FAERS Safety Report 14640452 (Version 1)
Quarter: 2018Q1

REPORT INFORMATION
  Report Type: Spontaneous
  Country: US (occurrence: US)
  Receive Date: 20180315
  Receipt Date: 20180315
  Transmission Date: 20180509
  Serious: No
  Sender: FDA-Public Use
  Company Number: US-PFIZER INC-2018100744

PATIENT
  Age: 77 Year
  Sex: Male

DRUGS (2)
  1. RANEXA [Interacting]
     Active Substance: RANOLAZINE
     Dosage: UNK
  2. LIPITOR [Suspect]
     Active Substance: ATORVASTATIN CALCIUM
     Dosage: UNK

REACTIONS (3)
  - Drug interaction [Recovered/Resolved]
  - Rash pruritic [Recovered/Resolved]
  - Skin reaction [Recovered/Resolved]
